FAERS Safety Report 10816468 (Version 1)
Quarter: 2015Q1

REPORT INFORMATION
  Report Type: Spontaneous
  Country: US (occurrence: US)
  Receive Date: 20150218
  Receipt Date: 20150218
  Transmission Date: 20150721
  Serious: Yes (Death)
  Sender: FDA-Public Use
  Company Number: US-BANPHARM-20153449

PATIENT
  Age: 39 Year
  Sex: Male

DRUGS (7)
  1. AMANTADINE UNKNOWN PRODUCT [Suspect]
     Active Substance: AMANTADINE
  2. TRAMADOL [Suspect]
     Active Substance: TRAMADOL
  3. PAROXETINE [Suspect]
     Active Substance: PAROXETINE\PAROXETINE HYDROCHLORIDE
  4. ZIPRASIDONE [Suspect]
     Active Substance: ZIPRASIDONE
  5. LOMOTIL [Suspect]
     Active Substance: ATROPINE SULFATE\DIPHENOXYLATE HYDROCHLORIDE
  6. HYDROMORPHONE [Suspect]
     Active Substance: HYDROMORPHONE
  7. CAFFEINE. [Suspect]
     Active Substance: CAFFEINE

REACTIONS (2)
  - Completed suicide [Fatal]
  - Exposure via ingestion [None]
